FAERS Safety Report 18574029 (Version 3)
Quarter: 2020Q4

REPORT INFORMATION
  Report Type: Spontaneous
  Country: GB (occurrence: GB)
  Receive Date: 20201203
  Receipt Date: 20201218
  Transmission Date: 20210114
  Serious: Yes (Other)
  Sender: FDA-Public Use
  Company Number: GB-LEO PHARMA-333476

PATIENT
  Age: 80 Year
  Sex: Male

DRUGS (1)
  1. PICATO [Suspect]
     Active Substance: INGENOL MEBUTATE
     Indication: ACTINIC KERATOSIS
     Route: 061
     Dates: start: 20141208, end: 20141210

REACTIONS (6)
  - Eye swelling [Recovered/Resolved]
  - Macular fibrosis [Unknown]
  - Seborrhoeic keratosis [Unknown]
  - Squamous cell carcinoma [Recovered/Resolved with Sequelae]
  - Eye operation [Recovered/Resolved with Sequelae]
  - Eye pain [Not Recovered/Not Resolved]

NARRATIVE: CASE EVENT DATE: 20141211
